FAERS Safety Report 19632842 (Version 1)
Quarter: 2021Q3

REPORT INFORMATION
  Report Type: Spontaneous
  Country: CA (occurrence: CA)
  Receive Date: 20210730
  Receipt Date: 20210730
  Transmission Date: 20211014
  Serious: Yes (Disabling, Other)
  Sender: FDA-Public Use
  Company Number: CA-AUROBINDO-AUR-APL-2021-031542

PATIENT
  Age: 68 Year
  Sex: Female

DRUGS (37)
  1. LISINOPRIL TABLET [Suspect]
     Active Substance: LISINOPRIL
     Indication: RHEUMATOID ARTHRITIS
     Dosage: UNK
     Route: 048
  2. DICLOFENAC POTASSIUM. [Suspect]
     Active Substance: DICLOFENAC POTASSIUM
     Dosage: UNK
     Route: 048
  3. HYDROXYCHLOROQUINE SULFATE. [Suspect]
     Active Substance: HYDROXYCHLOROQUINE SULFATE
     Indication: RHEUMATOID ARTHRITIS
     Dosage: UNK
     Route: 048
  4. SULFASALAZINE. [Suspect]
     Active Substance: SULFASALAZINE
     Indication: RHEUMATOID ARTHRITIS
     Dosage: 2 GRAM, ONCE A DAY
     Route: 048
  5. PANTOPRAZOLE [Suspect]
     Active Substance: PANTOPRAZOLE
     Dosage: UNK
     Route: 048
  6. PANTOPRAZOLE [Suspect]
     Active Substance: PANTOPRAZOLE
     Dosage: UNK
     Route: 048
  7. PANTOPRAZOLE [Suspect]
     Active Substance: PANTOPRAZOLE
     Dosage: UNK
     Route: 048
  8. DICLOFENAC POTASSIUM. [Suspect]
     Active Substance: DICLOFENAC POTASSIUM
     Indication: PRODUCT USED FOR UNKNOWN INDICATION
     Dosage: 75 MILLIGRAM
     Route: 048
  9. DICLOFENAC POTASSIUM. [Suspect]
     Active Substance: DICLOFENAC POTASSIUM
     Dosage: 75 MILLIGRAM, TWO TIMES A DAY
     Route: 048
  10. DICLOFENAC POTASSIUM. [Suspect]
     Active Substance: DICLOFENAC POTASSIUM
     Dosage: UNK
     Route: 048
  11. FOLIC ACID. [Suspect]
     Active Substance: FOLIC ACID
     Indication: RHEUMATOID ARTHRITIS
     Dosage: UNK
     Route: 065
  12. XELJANZ [Suspect]
     Active Substance: TOFACITINIB CITRATE
     Dosage: 10 MILLIGRAM, ONCE A DAY
     Route: 048
  13. PANTOPRAZOLE [Suspect]
     Active Substance: PANTOPRAZOLE
     Dosage: UNK
     Route: 048
  14. DICLOFENAC [Suspect]
     Active Substance: DICLOFENAC
     Indication: PRODUCT USED FOR UNKNOWN INDICATION
     Dosage: 75 MILLIGRAM, TWO TIMES A DAY
     Route: 048
  15. DICLOFENAC [Suspect]
     Active Substance: DICLOFENAC
     Dosage: 75 MILLIGRAM, TWO TIMES A DAY
     Route: 048
  16. METHOTREXATE. [Suspect]
     Active Substance: METHOTREXATE
     Indication: RHEUMATOID ARTHRITIS
     Dosage: 20 MILLIGRAM, EVERY WEEK
     Route: 058
  17. METHOTREXATE. [Suspect]
     Active Substance: METHOTREXATE
     Dosage: 200 MILLIGRAM, ONCE A DAY
     Route: 058
  18. SODIUM AUROTHIOMALATE [Suspect]
     Active Substance: GOLD SODIUM THIOMALATE
     Dosage: UNK
     Route: 065
  19. TECTA [Suspect]
     Active Substance: PANTOPRAZOLE MAGNESIUM
     Indication: RHEUMATOID ARTHRITIS
     Dosage: UNK
     Route: 048
  20. GOLD [Concomitant]
     Active Substance: GOLD
     Indication: PRODUCT USED FOR UNKNOWN INDICATION
     Dosage: UNK
     Route: 065
  21. DICLOFENAC [Suspect]
     Active Substance: DICLOFENAC
     Dosage: UNK
     Route: 048
  22. DICLOFENAC POTASSIUM. [Suspect]
     Active Substance: DICLOFENAC POTASSIUM
     Indication: RHEUMATOID ARTHRITIS
     Dosage: 75 MILLIGRAM, TWO TIMES A DAY
     Route: 048
  23. HYDROXYCHLOROQUINE SULFATE. [Suspect]
     Active Substance: HYDROXYCHLOROQUINE SULFATE
     Dosage: 200 MILLIGRAM, ONCE A DAY
     Route: 048
  24. PANTOPRAZOLE [Suspect]
     Active Substance: PANTOPRAZOLE
     Indication: RHEUMATOID ARTHRITIS
     Dosage: UNK
     Route: 048
  25. PANTOPRAZOLE [Suspect]
     Active Substance: PANTOPRAZOLE
     Dosage: UNK
     Route: 048
  26. DICLOFENAC [Suspect]
     Active Substance: DICLOFENAC
     Dosage: UNK UNK, ONCE A DAY
     Route: 048
  27. DICLOFENAC POTASSIUM. [Suspect]
     Active Substance: DICLOFENAC POTASSIUM
     Indication: RHEUMATOID ARTHRITIS
     Dosage: 75 MILLIGRAM
     Route: 048
  28. PLAQUENIL [Suspect]
     Active Substance: HYDROXYCHLOROQUINE SULFATE
     Dosage: 200 MILLIGRAM, ONCE A DAY
     Route: 048
  29. XELJANZ [Suspect]
     Active Substance: TOFACITINIB CITRATE
     Dosage: UNK
     Route: 048
  30. DICLOFENAC [Suspect]
     Active Substance: DICLOFENAC
     Dosage: UNK
     Route: 048
  31. SODIUM AUROTHIOMALATE [Suspect]
     Active Substance: GOLD SODIUM THIOMALATE
     Indication: RHEUMATOID ARTHRITIS
     Dosage: 2 MILLIGRAM, ONCE A DAY
     Route: 048
  32. PLAQUENIL [Suspect]
     Active Substance: HYDROXYCHLOROQUINE SULFATE
     Indication: RHEUMATOID ARTHRITIS
     Dosage: 400 MILLIGRAM, ONCE A DAY
     Route: 048
  33. SULFASALAZINE. [Suspect]
     Active Substance: SULFASALAZINE
     Indication: RHEUMATOID ARTHRITIS
     Dosage: 500 MILLIGRAM, ONCE A DAY
     Route: 048
  34. SULFASALAZINE. [Suspect]
     Active Substance: SULFASALAZINE
     Dosage: 1 GRAM, TWO TIMES A DAY
     Route: 048
  35. TECTA [Suspect]
     Active Substance: PANTOPRAZOLE MAGNESIUM
     Indication: RHEUMATOID ARTHRITIS
     Dosage: UNK
     Route: 048
  36. XELJANZ [Suspect]
     Active Substance: TOFACITINIB CITRATE
     Indication: RHEUMATOID ARTHRITIS
     Dosage: 5 MILLIGRAM, TWO TIMES A DAY
     Route: 048
  37. DEPO?MEDROL [Concomitant]
     Active Substance: METHYLPREDNISOLONE ACETATE
     Indication: PRODUCT USED FOR UNKNOWN INDICATION
     Dosage: UNK
     Route: 030

REACTIONS (16)
  - Contusion [Not Recovered/Not Resolved]
  - Loss of personal independence in daily activities [Not Recovered/Not Resolved]
  - Spinal stenosis [Not Recovered/Not Resolved]
  - Condition aggravated [Not Recovered/Not Resolved]
  - Fall [Not Recovered/Not Resolved]
  - Illness [Not Recovered/Not Resolved]
  - Osteoarthritis [Not Recovered/Not Resolved]
  - Tenderness [Not Recovered/Not Resolved]
  - Rotator cuff repair [Not Recovered/Not Resolved]
  - Pain [Not Recovered/Not Resolved]
  - Treatment failure [Not Recovered/Not Resolved]
  - Fatigue [Not Recovered/Not Resolved]
  - Grip strength decreased [Not Recovered/Not Resolved]
  - Joint swelling [Not Recovered/Not Resolved]
  - Malaise [Not Recovered/Not Resolved]
  - Rheumatoid arthritis [Not Recovered/Not Resolved]
